FAERS Safety Report 19886953 (Version 1)
Quarter: 2021Q3

REPORT INFORMATION
  Report Type: Spontaneous
  Country: AT (occurrence: AT)
  Receive Date: 20210928
  Receipt Date: 20210928
  Transmission Date: 20211014
  Serious: Yes (Other)
  Sender: FDA-Public Use
  Company Number: AT-B.I. PHARMACEUTICALS,INC./RIDGEFIELD-2021-BI-129138

PATIENT
  Age: 76 Year
  Sex: Male

DRUGS (3)
  1. ABATACEPT [Concomitant]
     Active Substance: ABATACEPT
     Indication: PRODUCT USED FOR UNKNOWN INDICATION
  2. OFEV [Suspect]
     Active Substance: NINTEDANIB
     Indication: IDIOPATHIC PULMONARY FIBROSIS
     Dosage: PATIENT SUFFERED FROM DIARRHEA UNDER NINTEDANIB, WHICH LEFT AFTER DOSE REDUCTION.
     Dates: start: 20190702
  3. CORTISONE [Concomitant]
     Active Substance: CORTISONE
     Indication: IDIOPATHIC PULMONARY FIBROSIS

REACTIONS (2)
  - Idiopathic pulmonary fibrosis [Not Recovered/Not Resolved]
  - Diarrhoea [Recovered/Resolved]

NARRATIVE: CASE EVENT DATE: 2021
